FAERS Safety Report 10450850 (Version 2)
Quarter: 2014Q3

REPORT INFORMATION
  Report Type: Spontaneous
  Country: US (occurrence: US)
  Receive Date: 20140912
  Receipt Date: 20140912
  Transmission Date: 20150326
  Serious: Yes (Hospitalization, Other)
  Sender: FDA-Public Use
  Company Number: US-ABBVIE-14P-163-1256961-00

PATIENT

DRUGS (1)
  1. CREON [Suspect]
     Active Substance: PANCRELIPASE AMYLASE\PANCRELIPASE LIPASE\PANCRELIPASE PROTEASE
     Indication: PANCREATIC DISORDER

REACTIONS (14)
  - Pain [Not Recovered/Not Resolved]
  - Malaise [Unknown]
  - Arthropod bite [Unknown]
  - Vomiting projectile [Unknown]
  - Coma [Unknown]
  - Memory impairment [Unknown]
  - Condition aggravated [Unknown]
  - Diplopia [Unknown]
  - Disturbance in attention [Unknown]
  - Drug administration error [Unknown]
  - Dyspnoea [Unknown]
  - Dyspepsia [Unknown]
  - Abdominal pain [Unknown]
  - Visual impairment [Unknown]
